FAERS Safety Report 9216743 (Version 1)
Quarter: 2013Q2

REPORT INFORMATION
  Report Type: Spontaneous
  Country: GB (occurrence: None)
  Receive Date: 20130404
  Receipt Date: 20130404
  Transmission Date: 20140414
  Serious: Yes (Other)
  Sender: FDA-Public Use
  Company Number: 1660280

PATIENT
  Age: 22 Year
  Sex: Female
  Weight: 47 kg

DRUGS (1)
  1. DEXMEDETOMIDINE HYDROCHLORIDE [Suspect]
     Indication: SEDATION
     Dosage: 0.7 MCG/KG/H - 1 MCH/KG/H, UNK
     Dates: start: 20120208, end: 20120208

REACTIONS (3)
  - Hemiparesis [None]
  - Blood pressure systolic increased [None]
  - Mydriasis [None]
